FAERS Safety Report 8224969-2 (Version None)
Quarter: 2012Q1

REPORT INFORMATION
  Report Type: 
  Country: None (occurrence: None)
  Receive Date: 20120321
  Receipt Date: 20120316
  Transmission Date: 20120608
  Serious: Yes (Hospitalization)
  Sender: FDA-Public Use
  Company Number: US-BAYER-2011-116843

PATIENT
  Age: 22 Year
  Sex: Female
  Weight: 68.027 kg

DRUGS (4)
  1. YAZ [Suspect]
     Indication: CONTRACEPTION
  2. ZOLOFT [Concomitant]
     Indication: DEPRESSION
     Dosage: UNK
     Dates: start: 20090101
  3. FLONASE [Concomitant]
     Indication: SINUS OPERATION
  4. YAZ [Suspect]
     Indication: ACNE
     Dosage: UNK
     Dates: start: 20090223, end: 20091125

REACTIONS (7)
  - PULMONARY EMBOLISM [None]
  - PAIN [None]
  - INJURY [None]
  - ANHEDONIA [None]
  - OEDEMA PERIPHERAL [None]
  - DEEP VEIN THROMBOSIS [None]
  - ANXIETY [None]
